FAERS Safety Report 10041233 (Version 4)
Quarter: 2014Q2

REPORT INFORMATION
  Report Type: Spontaneous
  Country: US (occurrence: US)
  Receive Date: 20140327
  Receipt Date: 20140424
  Transmission Date: 20141212
  Serious: Yes (Death, Hospitalization, Other)
  Sender: FDA-Public Use
  Company Number: US-INCYTE CORPORATION-2014IN000727

PATIENT
  Age: 74 Year
  Sex: Male
  Weight: 73.47 kg

DRUGS (13)
  1. JAKAFI [Suspect]
     Dosage: 20 MG, BID
     Route: 048
     Dates: start: 20111216
  2. JAKAFI [Suspect]
     Dosage: 10 MG, BID
     Route: 048
     Dates: start: 20121010, end: 20140320
  3. AMLODIPINE [Concomitant]
  4. CLOBETASOL [Concomitant]
  5. TRIAMCINOLONE [Concomitant]
  6. HYDROXYUREA [Concomitant]
  7. FORADIL [Concomitant]
  8. HYDROCORTISONE                     /00028602/ [Concomitant]
  9. CICLOPIROX [Concomitant]
  10. TERBINAFINE [Concomitant]
  11. HYDROCHLOROTHIAZIDE [Concomitant]
  12. ARCAPTA [Concomitant]
  13. GENADUR [Concomitant]

REACTIONS (15)
  - Disease progression [Fatal]
  - Splenic rupture [Fatal]
  - Shock [Not Recovered/Not Resolved]
  - Dyspnoea [Not Recovered/Not Resolved]
  - Renal failure acute [Not Recovered/Not Resolved]
  - Respiratory failure [Not Recovered/Not Resolved]
  - Multi-organ failure [Not Recovered/Not Resolved]
  - Hyperkalaemia [Not Recovered/Not Resolved]
  - Metabolic acidosis [Not Recovered/Not Resolved]
  - Lactic acidosis [Not Recovered/Not Resolved]
  - Fluid retention [Not Recovered/Not Resolved]
  - Haemoglobin decreased [Not Recovered/Not Resolved]
  - Abdominal distension [Not Recovered/Not Resolved]
  - Abdominal discomfort [Not Recovered/Not Resolved]
  - Splenomegaly [Not Recovered/Not Resolved]
